FAERS Safety Report 20631838 (Version 2)
Quarter: 2022Q2

REPORT INFORMATION
  Report Type: Spontaneous
  Country: DE (occurrence: DE)
  Receive Date: 20220324
  Receipt Date: 20220413
  Transmission Date: 20220720
  Serious: Yes (Hospitalization, Other)
  Sender: FDA-Public Use
  Company Number: DE-VERTEX PHARMACEUTICALS-2022-004343

PATIENT
  Age: 19 Year
  Sex: Male

DRUGS (2)
  1. ELEXACAFTOR\IVACAFTOR\TEZACAFTOR [Suspect]
     Active Substance: ELEXACAFTOR\IVACAFTOR\TEZACAFTOR
     Indication: Cystic fibrosis
     Dosage: (75 MG IVACAFTOR/ 50 MG TEZACAFTOR/ 100 MG ELEXACAFTOR) NORMAL DOSAGE
     Route: 048
     Dates: start: 202106
  2. KALYDECO [Suspect]
     Active Substance: IVACAFTOR
     Indication: Cystic fibrosis
     Dosage: NORMAL DOSAGE
     Route: 048
     Dates: start: 202106

REACTIONS (3)
  - Sleep deficit [Unknown]
  - Idiopathic generalised epilepsy [Unknown]
  - Juvenile myoclonic epilepsy [Unknown]

NARRATIVE: CASE EVENT DATE: 20211001
